FAERS Safety Report 5630923-7 (Version None)
Quarter: 2008Q1

REPORT INFORMATION
  Report Type: 
  Country: None (occurrence: None)
  Receive Date: 20080219
  Receipt Date: 20080208
  Transmission Date: 20080703
  Serious: Yes (Other)
  Sender: FDA-Public Use
  Company Number: GB-ROCHE-542968

PATIENT
  Age: 58 Year
  Sex: Female
  Weight: 96.2 kg

DRUGS (14)
  1. ORLISTAT [Suspect]
     Indication: OBESITY
     Route: 048
     Dates: start: 20070808, end: 20071203
  2. CALCICHEW D3 [Concomitant]
     Dosage: DRUG REPORTED: CALICHEW
     Route: 048
     Dates: start: 20040101
  3. LANSOPRAZOLE [Concomitant]
     Indication: GASTRIC ULCER
     Route: 048
     Dates: start: 19880101
  4. VITAMIN B [Concomitant]
     Route: 048
  5. SPIRONOLACTONE [Concomitant]
     Route: 048
  6. METFORMIN HCL [Concomitant]
     Route: 048
  7. CITALOPRAM HYDROBROMIDE [Concomitant]
     Indication: DEPRESSION
     Route: 048
  8. FERROUS SULFATE TAB [Concomitant]
     Indication: ANAEMIA
     Route: 048
  9. LANTUS [Concomitant]
     Route: 065
  10. CODEINE PHOSPHATE [Concomitant]
     Route: 065
  11. THIAMINE [Concomitant]
     Route: 065
  12. LACTULOSE [Concomitant]
     Route: 065
  13. FRESENIUS ENERGAN [Concomitant]
     Dosage: DRUG REPORTED AS FRESNIUS
     Route: 065
  14. FOLIC ACID [Concomitant]
     Route: 065

REACTIONS (1)
  - BREAST MASS [None]
